FAERS Safety Report 5684597-X (Version None)
Quarter: 2008Q1

REPORT INFORMATION
  Report Type: 
  Country: None (occurrence: None)
  Receive Date: 20080328
  Receipt Date: 20070508
  Transmission Date: 20080703
  Serious: Yes (Life-Threatening)
  Sender: FDA-Public Use
  Company Number: US-BRISTOL-MYERS SQUIBB COMPANY-13729017

PATIENT
  Age: 59 Year
  Sex: Male

DRUGS (10)
  1. ERBITUX [Suspect]
     Indication: NEOPLASM MALIGNANT
     Route: 042
     Dates: start: 20070326, end: 20070326
  2. TYLENOL (CAPLET) [Concomitant]
     Indication: PREMEDICATION
     Route: 048
     Dates: start: 20070326
  3. BENADRYL [Concomitant]
     Indication: PREMEDICATION
     Route: 042
     Dates: start: 20070326
  4. INSULIN HUMAN [Concomitant]
  5. TENORMIN [Concomitant]
  6. LISINOPRIL [Concomitant]
  7. ASPIRIN [Concomitant]
  8. ATIVAN [Concomitant]
  9. CRESTOR [Concomitant]
  10. ZETIA [Concomitant]

REACTIONS (10)
  - BLOOD PRESSURE IMMEASURABLE [None]
  - CONVULSION [None]
  - FLUSHING [None]
  - HYPERHIDROSIS [None]
  - INFUSION RELATED REACTION [None]
  - OXYGEN SATURATION DECREASED [None]
  - PRURITUS [None]
  - PULSE PRESSURE DECREASED [None]
  - TACHYCARDIA [None]
  - VOMITING [None]
